FAERS Safety Report 17137641 (Version 1)
Quarter: 2019Q4

REPORT INFORMATION
  Report Type: Spontaneous
  Country: US (occurrence: US)
  Receive Date: 20191118
  Receipt Date: 20191118
  Transmission Date: 20200122
  Serious: Yes (Hospitalization)
  Sender: FDA-Public Use
  Company Number: None

PATIENT
  Age: 69 Year
  Sex: Male
  Weight: 163.3 kg

DRUGS (1)
  1. WARFARIN [Suspect]
     Active Substance: WARFARIN
     Indication: CARDIAC VALVE PROSTHESIS USER
     Route: 048
     Dates: start: 20131209

REACTIONS (5)
  - Dialysis [None]
  - Lower gastrointestinal haemorrhage [None]
  - Anticoagulation drug level above therapeutic [None]
  - Diverticulum [None]
  - Transfusion [None]

NARRATIVE: CASE EVENT DATE: 20190821
